FAERS Safety Report 23403273 (Version 1)
Quarter: 2024Q1

REPORT INFORMATION
  Report Type: Spontaneous
  Country: US (occurrence: US)
  Receive Date: 20240116
  Receipt Date: 20240116
  Transmission Date: 20240410
  Serious: No
  Sender: FDA-Public Use
  Company Number: US-ALKEM LABORATORIES LIMITED-US-ALKEM-2023-00510

PATIENT
  Age: 73 Year
  Sex: Female

DRUGS (1)
  1. CAPECITABINE [Suspect]
     Active Substance: CAPECITABINE
     Indication: Triple negative breast cancer
     Dosage: UNK, BID (2000 MG EACH MORNING AND 1500 MG EACH EVENING FOR ONE WEEK ON AND ONE WEEK OFF)
     Route: 065
     Dates: start: 201204, end: 201410

REACTIONS (3)
  - Dermatoglyphic anomaly [Unknown]
  - Palmar-plantar erythrodysaesthesia syndrome [Unknown]
  - Fingerprint loss [Unknown]
